FAERS Safety Report 11174768 (Version 1)
Quarter: 2015Q2

REPORT INFORMATION
  Report Type: Spontaneous
  Country: US (occurrence: None)
  Receive Date: 20150608
  Receipt Date: 20150608
  Transmission Date: 20150821
  Serious: Yes (Other)
  Sender: FDA-Public Use
  Company Number: None

PATIENT
  Age: 59 Year
  Sex: Male
  Weight: 65.77 kg

DRUGS (4)
  1. VITAMIN D [Concomitant]
     Active Substance: CHOLECALCIFEROL
  2. FLUVASTATIN [Suspect]
     Active Substance: FLUVASTATIN SODIUM
  3. LOW GRADE ASPIRIN [Concomitant]
  4. VITAMIN B12 [Concomitant]
     Active Substance: CYANOCOBALAMIN

REACTIONS (4)
  - Memory impairment [None]
  - Impaired work ability [None]
  - Disturbance in attention [None]
  - Fatigue [None]
